FAERS Safety Report 5521126-5 (Version None)
Quarter: 2007Q4

REPORT INFORMATION
  Report Type: 
  Country: None (occurrence: None)
  Receive Date: 20071119
  Receipt Date: 20070727
  Transmission Date: 20080405
  Serious: Yes (Hospitalization)
  Sender: FDA-Public Use
  Company Number: US-ASTRAZENECA-2007UW01939

PATIENT
  Age: 11668 Day
  Sex: Female
  Weight: 143.2 kg

DRUGS (3)
  1. SEROQUEL [Suspect]
     Indication: DEPRESSION
     Dosage: 25 TO 50 MG
     Route: 048
     Dates: start: 20041101, end: 20050518
  2. SEROQUEL [Suspect]
     Indication: SLEEP DISORDER
     Dosage: 25 TO 50 MG
     Route: 048
     Dates: start: 20041101, end: 20050518
  3. ZOLOFT [Concomitant]

REACTIONS (9)
  - ANAEMIA [None]
  - BLOOD CHOLESTEROL INCREASED [None]
  - HYPERANDROGENISM [None]
  - HYSTERECTOMY [None]
  - INSULIN RESISTANCE [None]
  - METABOLIC SYNDROME [None]
  - OBESITY [None]
  - POLYCYSTIC OVARIES [None]
  - TYPE 2 DIABETES MELLITUS [None]
